FAERS Safety Report 4386570-0 (Version None)
Quarter: 2004Q2

REPORT INFORMATION
  Report Type: 
  Country: None (occurrence: None)
  Receive Date: 20040623
  Receipt Date: 20040609
  Transmission Date: 20050107
  Serious: Yes (Death, Other)
  Sender: FDA-Public Use
  Company Number: GBS040615067

PATIENT
  Age: 55 Year
  Sex: Female

DRUGS (15)
  1. XIGRIS [Suspect]
     Dosage: 20 MG
     Dates: start: 20040515, end: 20040520
  2. CEFOTAXIME [Concomitant]
  3. AMPICILLIN [Concomitant]
  4. METRONIDAZOLE [Concomitant]
  5. PANTOPRAZOLE [Concomitant]
  6. HYDROCORTISONE [Concomitant]
  7. SYNACTHEN (TETRACOSACTIDE) [Concomitant]
  8. PABRINEX [Concomitant]
  9. NORADRENALINE [Concomitant]
  10. VASOPRESSIN INJECTION [Concomitant]
  11. FUROSEMIDE [Concomitant]
  12. PROPOFOL [Concomitant]
  13. ALFENTANIL [Concomitant]
  14. AMIODARONE HCL [Concomitant]
  15. FLUCONAZOLE [Concomitant]

REACTIONS (8)
  - CEREBRAL HAEMORRHAGE [None]
  - COMA [None]
  - DIALYSIS [None]
  - DISSEMINATED INTRAVASCULAR COAGULATION [None]
  - FUNGAL ABSCESS CENTRAL NERVOUS SYSTEM [None]
  - RENAL FAILURE [None]
  - SUBARACHNOID HAEMORRHAGE [None]
  - SUBDURAL HAEMATOMA [None]
